FAERS Safety Report 5408884-5 (Version None)
Quarter: 2007Q3

REPORT INFORMATION
  Report Type: 
  Country: None (occurrence: None)
  Receive Date: 20070808
  Receipt Date: 20070807
  Transmission Date: 20080115
  Serious: Yes (Other)
  Sender: FDA-Public Use
  Company Number: US-ROXANE LABORATORIES, INC-2007-DE-04673GD

PATIENT
  Age: 24 Year
  Sex: Male

DRUGS (4)
  1. ORAMORPH SR [Suspect]
     Indication: TRIGEMINAL NEURALGIA
  2. VICODIN [Suspect]
     Indication: TRIGEMINAL NEURALGIA
  3. DILAUDID [Suspect]
     Indication: TRIGEMINAL NEURALGIA
  4. DEMEROL [Suspect]
     Indication: TRIGEMINAL NEURALGIA

REACTIONS (1)
  - HYPERTENSIVE CRISIS [None]
